FAERS Safety Report 6678903-7 (Version None)
Quarter: 2010Q2

REPORT INFORMATION
  Report Type: 
  Country: None (occurrence: None)
  Receive Date: 20100412
  Receipt Date: 20100412
  Transmission Date: 20101027
  Serious: Yes (Life-Threatening)
  Sender: FDA-Public Use
  Company Number: None

PATIENT
  Age: 56 Year
  Sex: Female
  Weight: 59.8748 kg

DRUGS (2)
  1. STADOL [Suspect]
     Indication: PAIN
     Dates: start: 20091101, end: 20091101
  2. STADOL [Suspect]
     Indication: PAIN
     Dates: start: 20100308, end: 20100308

REACTIONS (1)
  - ANAPHYLACTIC SHOCK [None]
